FAERS Safety Report 9960335 (Version 2)
Quarter: 2014Q1

REPORT INFORMATION
  Report Type: Other
  Country: CA (occurrence: CA)
  Receive Date: 20140305
  Receipt Date: 20140327
  Transmission Date: 20141002
  Serious: Yes (Hospitalization, Other)
  Sender: FDA-Public Use
  Company Number: CA-US-EMD SERONO, INC.-7272219

PATIENT
  Age: 47 Year
  Sex: Female
  Weight: 54 kg

DRUGS (1)
  1. REBIF [Suspect]
     Indication: RELAPSING-REMITTING MULTIPLE SCLEROSIS

REACTIONS (5)
  - Haemolytic uraemic syndrome [Recovering/Resolving]
  - Retinopathy hypertensive [Recovering/Resolving]
  - Papilloedema [Recovering/Resolving]
  - Ear pain [Unknown]
  - Renal failure chronic [Not Recovered/Not Resolved]
